FAERS Safety Report 6653289-2 (Version None)
Quarter: 2010Q1

REPORT INFORMATION
  Report Type: 
  Country: None (occurrence: None)
  Receive Date: 20100326
  Receipt Date: 20100319
  Transmission Date: 20100710
  Serious: Yes (Hospitalization, Other)
  Sender: FDA-Public Use
  Company Number: CN-ROCHE-590719

PATIENT
  Sex: Female
  Weight: 60 kg

DRUGS (5)
  1. CELLCEPT [Suspect]
     Route: 048
     Dates: start: 19980710, end: 20081201
  2. CELLCEPT [Suspect]
     Dosage: DOSAGE WAS UNKNOWN
     Route: 048
     Dates: start: 20090101, end: 20090101
  3. PROGRAF [Concomitant]
     Dosage: 1MG IN THE MORNING, AND 0.5MG AT NIGHT.
     Route: 048
     Dates: start: 19980710
  4. PREDNISONE TAB [Concomitant]
     Route: 048
     Dates: start: 19980701, end: 20081201
  5. SANDIMMUNE [Concomitant]
     Route: 048
     Dates: start: 19980701, end: 20070101

REACTIONS (6)
  - DIARRHOEA [None]
  - EMOTIONAL DISORDER [None]
  - LACUNAR INFARCTION [None]
  - MUSCLE ATROPHY [None]
  - PROGRESSIVE MULTIFOCAL LEUKOENCEPHALOPATHY [None]
  - WEIGHT DECREASED [None]
